FAERS Safety Report 9209585 (Version 1)
Quarter: 2013Q2

REPORT INFORMATION
  Report Type: Spontaneous
  Country: US (occurrence: US)
  Receive Date: 20130404
  Receipt Date: 20130404
  Transmission Date: 20140414
  Serious: Yes (Other)
  Sender: FDA-Public Use
  Company Number: US-BRISTOL-MYERS SQUIBB COMPANY-18718577

PATIENT
  Sex: Male

DRUGS (2)
  1. COUMADIN [Suspect]
  2. CELEBREX [Suspect]

REACTIONS (1)
  - Cerebrovascular accident [Unknown]
